FAERS Safety Report 9323377 (Version 1)
Quarter: 2013Q2

REPORT INFORMATION
  Report Type: Spontaneous
  Country: IT (occurrence: IT)
  Receive Date: 20130603
  Receipt Date: 20130603
  Transmission Date: 20140414
  Serious: Yes (Other)
  Sender: FDA-Public Use
  Company Number: IT-ACCORD-017919

PATIENT
  Age: 64 Year
  Sex: Female

DRUGS (2)
  1. PACLITAXEL [Suspect]
     Indication: ENDOMETRIAL CANCER METASTATIC
     Route: 042
     Dates: start: 20130321, end: 20130321
  2. CARBOPLATIN [Suspect]
     Indication: ENDOMETRIAL CANCER METASTATIC
     Route: 042
     Dates: start: 20130321, end: 20130321

REACTIONS (4)
  - Choking sensation [Recovered/Resolved]
  - Pruritus [Recovered/Resolved]
  - Rash [Recovered/Resolved]
  - Off label use [Unknown]
